FAERS Safety Report 13822237 (Version 1)
Quarter: 2017Q3

REPORT INFORMATION
  Report Type: Spontaneous
  Country: US (occurrence: US)
  Receive Date: 20170801
  Receipt Date: 20170801
  Transmission Date: 20171127
  Serious: Yes (Disabling)
  Sender: FDA-Public Use
  Company Number: None

PATIENT
  Age: 77 Year
  Sex: Female

DRUGS (8)
  1. COREG [Concomitant]
     Active Substance: CARVEDILOL
  2. ROSUVASTATIN. [Concomitant]
     Active Substance: ROSUVASTATIN
  3. CLONIDINE. [Concomitant]
     Active Substance: CLONIDINE
  4. ESTRADIOL. [Concomitant]
     Active Substance: ESTRADIOL
  5. LOSARTAN. [Concomitant]
     Active Substance: LOSARTAN
  6. DEMADEX [Concomitant]
     Active Substance: TORSEMIDE
  7. LEVOFLOXACIN 500MG TAB AURO [Suspect]
     Active Substance: LEVOFLOXACIN
     Indication: PNEUMONITIS
     Dosage: 500 MG. # 10 1 DAILY PO?
     Route: 048
     Dates: start: 20170605, end: 20170609
  8. LEVSIN [Concomitant]
     Active Substance: HYOSCYAMINE SULFATE

REACTIONS (5)
  - Pain in extremity [None]
  - Sleep disorder due to general medical condition, insomnia type [None]
  - Joint crepitation [None]
  - Joint range of motion decreased [None]
  - Musculoskeletal pain [None]

NARRATIVE: CASE EVENT DATE: 20170609
